FAERS Safety Report 19051294 (Version 1)
Quarter: 2021Q1

REPORT INFORMATION
  Report Type: Spontaneous
  Country: US (occurrence: US)
  Receive Date: 20210324
  Receipt Date: 20210324
  Transmission Date: 20210420
  Serious: Yes (Hospitalization)
  Sender: FDA-Public Use
  Company Number: None

PATIENT
  Age: 30 Year
  Sex: Male
  Weight: 63 kg

DRUGS (1)
  1. PENICILLIN (PENICILLIN G PROCAINE 600000UNT/1.2ML INJ,SUSP) [Suspect]
     Active Substance: PENICILLIN G PROCAINE
     Indication: SYPHILIS
     Dosage: ?          OTHER STRENGTH:600000/1.2 UNT/ML;?
     Route: 041
     Dates: start: 20210312, end: 20210312

REACTIONS (4)
  - Pruritus [None]
  - Rash [None]
  - Tachycardia [None]
  - Urticaria [None]

NARRATIVE: CASE EVENT DATE: 20210312
